FAERS Safety Report 20893720 (Version 8)
Quarter: 2022Q3

REPORT INFORMATION
  Report Type: Spontaneous
  Country: JP (occurrence: JP)
  Receive Date: 20220531
  Receipt Date: 20220920
  Transmission Date: 20221027
  Serious: Yes (Death, Hospitalization, Other)
  Sender: FDA-Public Use
  Company Number: JP-JNJFOC-20220559523

PATIENT
  Age: 42 Year
  Sex: Female

DRUGS (10)
  1. UPTRAVI [Suspect]
     Active Substance: SELEXIPAG
     Indication: Pulmonary arterial hypertension
     Dosage: 2 TIMES 1 DAY
     Route: 048
     Dates: start: 20220502, end: 202205
  2. UPTRAVI [Suspect]
     Active Substance: SELEXIPAG
     Indication: Pulmonary arterial hypertension
     Dosage: 2 TIMES 1 DAY
     Route: 048
     Dates: start: 202205, end: 20220517
  3. UPTRAVI [Suspect]
     Active Substance: SELEXIPAG
     Indication: Pulmonary arterial hypertension
     Dosage: 2 TIMES 1 DAY
     Route: 048
     Dates: start: 20220518, end: 20220620
  4. UPTRAVI [Suspect]
     Active Substance: SELEXIPAG
     Dosage: 2 TIMES 1 DAY
     Route: 048
     Dates: start: 20220503, end: 202205
  5. UPTRAVI [Suspect]
     Active Substance: SELEXIPAG
     Dosage: 2 TIMES 1 DAY
     Route: 048
     Dates: start: 202205, end: 202205
  6. UPTRAVI [Suspect]
     Active Substance: SELEXIPAG
     Dosage: 2 TIMES 1 DAY
     Route: 048
     Dates: start: 20220518, end: 20220613
  7. OPSUMIT [Suspect]
     Active Substance: MACITENTAN
     Indication: Pulmonary arterial hypertension
     Route: 048
     Dates: start: 20220428
  8. OPSUMIT [Suspect]
     Active Substance: MACITENTAN
     Route: 048
     Dates: start: 20220429, end: 20220602
  9. MIRCERA [Concomitant]
     Active Substance: METHOXY POLYETHYLENE GLYCOL-EPOETIN BETA
     Dosage: DOSE UNKNOWN
     Route: 065
     Dates: start: 20220519, end: 20220519
  10. ROXADUSTAT [Concomitant]
     Active Substance: ROXADUSTAT
     Dosage: DOSE UNKNOWN
     Route: 048
     Dates: start: 20220520

REACTIONS (10)
  - Pulmonary arterial hypertension [Fatal]
  - Multiple organ dysfunction syndrome [Fatal]
  - Pulmonary arterial hypertension [Not Recovered/Not Resolved]
  - Right ventricular failure [Not Recovered/Not Resolved]
  - Anaemia [Recovered/Resolved]
  - Haemorrhagic erosive gastritis [Recovering/Resolving]
  - Erosive duodenitis [Recovered/Resolved]
  - Iron deficiency anaemia [Not Recovered/Not Resolved]
  - Erosive duodenitis [Recovering/Resolving]
  - Blood pressure decreased [Not Recovered/Not Resolved]

NARRATIVE: CASE EVENT DATE: 20220503
